FAERS Safety Report 4462000-5 (Version None)
Quarter: 2004Q3

REPORT INFORMATION
  Report Type: 
  Country: None (occurrence: None)
  Receive Date: 20040929
  Receipt Date: 20040518
  Transmission Date: 20050211
  Serious: Yes (Other)
  Sender: FDA-Public Use
  Company Number: PHNU2004DE01889

PATIENT
  Age: 60 Year
  Sex: Male
  Weight: 82 kg

DRUGS (8)
  1. ZOMETA [Suspect]
     Indication: PROSTATE CANCER METASTATIC
     Dosage: 4 MG, QMO
     Dates: start: 20020118
  2. DOCETAXEL [Concomitant]
     Indication: PROSTATE CANCER METASTATIC
     Dosage: 70 MG, UNK
     Route: 042
     Dates: start: 20030520, end: 20040721
  3. ESTRACYT [Suspect]
     Dosage: 140 UNK, UNK
     Dates: start: 20030520, end: 20040721
  4. DEXAMETHASONE [Concomitant]
     Dosage: 4 MG, UNK
     Route: 042
     Dates: start: 20030520, end: 20040721
  5. CASODEX [Concomitant]
     Indication: PROSTATE CANCER
     Dosage: 50 MG, UNK
     Dates: start: 20010606, end: 20020118
  6. CASODEX [Concomitant]
     Dosage: 150 MG, UNK
     Dates: start: 20020118
  7. MARCUMAR [Concomitant]
     Indication: THROMBOSIS PROPHYLAXIS
     Dates: start: 20010101
  8. FRAXIPARIN [Concomitant]
     Indication: THROMBOSIS PROPHYLAXIS
     Dosage: 4 MG, BID
     Route: 058
     Dates: start: 20030520, end: 20040721

REACTIONS (12)
  - BIOPSY BONE ABNORMAL [None]
  - BLOOD ALKALINE PHOSPHATASE INCREASED [None]
  - C-REACTIVE PROTEIN INCREASED [None]
  - DENTAL OPERATION [None]
  - IMPAIRED HEALING [None]
  - OSTEOMYELITIS [None]
  - OSTEONECROSIS [None]
  - PULMONARY EMBOLISM [None]
  - TOOTH DISORDER [None]
  - TOOTH EXTRACTION [None]
  - TOOTHACHE [None]
  - WHITE BLOOD CELL COUNT INCREASED [None]
